FAERS Safety Report 5950812-8 (Version None)
Quarter: 2008Q4

REPORT INFORMATION
  Report Type: 
  Country: None (occurrence: None)
  Receive Date: 20081022
  Receipt Date: 20080818
  Transmission Date: 20090506
  Serious: No
  Sender: FDA-Public Use
  Company Number: ALL1-2008-02340

PATIENT
  Age: 9 Year
  Sex: Female
  Weight: 24.9 kg

DRUGS (1)
  1. VYVANSE [Suspect]
     Indication: ATTENTION DEFICIT/HYPERACTIVITY DISORDER
     Dosage: 20 MG,1X/DAY:QD,ORAL
     Route: 048
     Dates: start: 20080808, end: 20080808

REACTIONS (7)
  - ABDOMINAL DISCOMFORT [None]
  - DIZZINESS [None]
  - DYSKINESIA [None]
  - HYPOPHAGIA [None]
  - INSOMNIA [None]
  - MUSCLE FATIGUE [None]
  - OBSESSIVE THOUGHTS [None]
